FAERS Safety Report 5508313-7 (Version None)
Quarter: 2007Q4

REPORT INFORMATION
  Report Type: 
  Country: None (occurrence: None)
  Receive Date: 20071106
  Receipt Date: 20071015
  Transmission Date: 20080405
  Serious: No
  Sender: FDA-Public Use
  Company Number: US-BOEHRINGER INGELHEIM PHARMACEUTICALS, INC.-2007-BP-22803BP

PATIENT
  Sex: Female

DRUGS (3)
  1. ZANTAC 150 [Suspect]
     Indication: GASTRITIS
     Route: 048
     Dates: start: 20070927
  2. AZITHROMYCIN [Concomitant]
     Indication: NASOPHARYNGITIS
     Dates: start: 20071011
  3. KEPPRA [Concomitant]
     Indication: CONVULSION PROPHYLAXIS

REACTIONS (4)
  - CHEST PAIN [None]
  - COUGH [None]
  - OEDEMA PERIPHERAL [None]
  - PAIN IN EXTREMITY [None]
